FAERS Safety Report 24789349 (Version 1)
Quarter: 2024Q4

REPORT INFORMATION
  Report Type: Spontaneous
  Country: AT (occurrence: AT)
  Receive Date: 20241230
  Receipt Date: 20241230
  Transmission Date: 20250115
  Serious: Yes (Other)
  Sender: GUERBET
  Company Number: AT-GUERBET/GUERBET AUSTRIA-AT-20240008

PATIENT
  Age: 75 Year
  Sex: Male

DRUGS (1)
  1. LIPIODOL [Suspect]
     Active Substance: ETHIODIZED OIL
     Indication: Lumbar artery embolisation
     Dosage: MIXTURE OF 2-N-BUTYL-CYANOACRYLATE-METACRYLOXYSULFOLANE AND LIPIODOL IN A DILUTION RATIO OF 1:3
     Route: 013

REACTIONS (2)
  - Bone infarction [Recovered/Resolved]
  - Product use in unapproved indication [Recovered/Resolved]
